FAERS Safety Report 5420249-9 (Version None)
Quarter: 2007Q3

REPORT INFORMATION
  Report Type: 
  Country: None (occurrence: None)
  Receive Date: 20070815
  Receipt Date: 20070806
  Transmission Date: 20080115
  Serious: Yes (Hospitalization)
  Sender: FDA-Public Use
  Company Number: T07-USA-02615-02

PATIENT
  Sex: Male
  Weight: 2.473 kg

DRUGS (6)
  1. CERVIDIL [Suspect]
     Indication: LABOUR INDUCTION
     Dosage: 10 MG ONCE TRANSPLACENTAL
     Route: 064
     Dates: start: 20061227, end: 20061227
  2. ZOLPIDEM TARTRATE [Concomitant]
  3. TYLENOL (CAPLET) [Concomitant]
  4. INTRAVENOUS FLUIDS [Concomitant]
  5. EPIDURAL OR REGIONAL ANESTHESIA [Concomitant]
  6. OXYGEN [Concomitant]

REACTIONS (8)
  - APGAR SCORE LOW [None]
  - CAESAREAN SECTION [None]
  - DRUG EXPOSURE DURING PREGNANCY [None]
  - FOETAL HEART RATE ABNORMAL [None]
  - FOETAL HEART RATE DECELERATION [None]
  - MATERNAL CONDITION AFFECTING FOETUS [None]
  - SMALL FOR DATES BABY [None]
  - TACHYCARDIA FOETAL [None]
